FAERS Safety Report 6690736-4 (Version None)
Quarter: 2010Q2

REPORT INFORMATION
  Report Type: 
  Country: None (occurrence: None)
  Receive Date: 20100421
  Receipt Date: 20100414
  Transmission Date: 20101027
  Serious: Yes (Hospitalization)
  Sender: FDA-Public Use
  Company Number: FR-BAXTER-2010BH009342

PATIENT
  Age: 66 Year
  Sex: Female

DRUGS (4)
  1. MESNA [Suspect]
     Indication: DRUG USE FOR UNKNOWN INDICATION
     Route: 042
     Dates: start: 20100327, end: 20100328
  2. HOLOXAN BAXTER [Suspect]
     Indication: LYMPHOMA
     Route: 042
     Dates: start: 20100327, end: 20100328
  3. ETOPOSIDE [Suspect]
     Indication: LYMPHOMA
     Route: 042
     Dates: start: 20100326, end: 20100326
  4. CARBOPLATIN [Suspect]
     Indication: LYMPHOMA
     Route: 042
     Dates: start: 20100327, end: 20100327

REACTIONS (2)
  - FEBRILE BONE MARROW APLASIA [None]
  - STATUS EPILEPTICUS [None]
